FAERS Safety Report 5028008-6 (Version None)
Quarter: 2006Q2

REPORT INFORMATION
  Report Type: 
  Country: None (occurrence: None)
  Receive Date: 20060616
  Receipt Date: 20060207
  Transmission Date: 20061013
  Serious: Yes (Disabling)
  Sender: FDA-Public Use
  Company Number: 2006AP00652

PATIENT
  Age: 21484 Day
  Sex: Male
  Weight: 45 kg

DRUGS (16)
  1. OMEPRAL [Suspect]
     Indication: GASTRIC ULCER HAEMORRHAGE
     Route: 048
     Dates: start: 20060203
  2. OMEPRAL INJECTION [Suspect]
     Indication: GASTRIC ULCER HAEMORRHAGE
     Route: 042
     Dates: start: 20060131, end: 20060202
  3. ALLOID G [Suspect]
     Route: 048
     Dates: start: 20060206
  4. CLARITHROMYCIN [Concomitant]
     Indication: HELICOBACTER INFECTION
     Dates: start: 20060131, end: 20060202
  5. AMOLIN [Concomitant]
     Indication: HELICOBACTER INFECTION
     Dates: start: 20060131, end: 20060202
  6. TAKEPRON [Concomitant]
     Indication: HELICOBACTER INFECTION
     Dates: start: 20060131, end: 20060202
  7. ZOTEPINE [Concomitant]
     Indication: SCHIZOPHRENIA
  8. ZOTEPINE [Concomitant]
  9. HYBIPERIDEN HYDROCHLORIDE [Concomitant]
     Indication: SCHIZOPHRENIA
  10. LEVOMEPROMAZINE MALEATE [Concomitant]
     Indication: SCHIZOPHRENIA
  11. NITRAZEPAM [Concomitant]
     Indication: SCHIZOPHRENIA
  12. CHLORPROMAZINE : PROMETHAZINE COMBINED DRUG [Concomitant]
     Indication: SCHIZOPHRENIA
     Route: 048
  13. TEPRENONE [Concomitant]
     Indication: SCHIZOPHRENIA
  14. SEISHOKU [Concomitant]
     Route: 042
     Dates: start: 20060131, end: 20060202
  15. RISPERDAL [Concomitant]
     Indication: SCHIZOPHRENIA
     Route: 048
     Dates: start: 20060220
  16. RISPERDAL [Concomitant]
     Route: 048
     Dates: start: 20060214, end: 20060219

REACTIONS (5)
  - EPILEPSY [None]
  - GRAND MAL CONVULSION [None]
  - HAEMATEMESIS [None]
  - HYPERKINESIA [None]
  - THROMBOSIS [None]
